FAERS Safety Report 24550288 (Version 2)
Quarter: 2024Q4

REPORT INFORMATION
  Report Type: Spontaneous
  Country: GB (occurrence: GB)
  Receive Date: 20241025
  Receipt Date: 20241030
  Transmission Date: 20250114
  Serious: Yes (Other)
  Sender: ORGANON
  Company Number: None

PATIENT
  Age: 29 Year
  Sex: Female
  Weight: 80 kg

DRUGS (3)
  1. NEXPLANON [Suspect]
     Active Substance: ETONOGESTREL
     Dosage: 1 IMPLANT FOR SUBDERMAL IMPLANT EXPIRY APRIL 2026
     Route: 058
     Dates: start: 20220425
  2. FOLIC ACID [Concomitant]
     Active Substance: FOLIC ACID
     Dosage: 1 DOSAGE FORM, QD
     Dates: start: 20240612
  3. GAVISCON ADVANCE PEPPERMINT [Concomitant]
     Dosage: ONE OR TWO 5 ML SPOONFULS TO BE TAKEN AFTER MEALS AND AT BEDTIME 500 ML
     Route: 048
     Dates: start: 20240628, end: 20240810

REACTIONS (2)
  - Device dislocation [Unknown]
  - Pregnancy with implant contraceptive [Unknown]

NARRATIVE: CASE EVENT DATE: 20230101
